FAERS Safety Report 4796943-X (Version None)
Quarter: 2005Q4

REPORT INFORMATION
  Report Type: 
  Country: None (occurrence: None)
  Receive Date: 20051011
  Receipt Date: 20051011
  Transmission Date: 20060501
  Serious: No
  Sender: FDA-Public Use
  Company Number: None

PATIENT
  Age: 34 Year
  Sex: Female
  Weight: 71.2147 kg

DRUGS (2)
  1. LEVAQUIN [Suspect]
     Indication: APPENDICITIS
     Dosage: 500MG IV
     Route: 042
     Dates: start: 20050902, end: 20050903
  2. LEVAQUIN [Suspect]
     Indication: LYMPHADENITIS
     Dosage: 500MG IV
     Route: 042
     Dates: start: 20050902, end: 20050903

REACTIONS (1)
  - PRURITUS [None]
